FAERS Safety Report 7711717-5 (Version None)
Quarter: 2011Q3

REPORT INFORMATION
  Report Type: 
  Country: None (occurrence: None)
  Receive Date: 20110826
  Receipt Date: 20110816
  Transmission Date: 20111222
  Serious: Yes (Hospitalization, Other)
  Sender: FDA-Public Use
  Company Number: NL-AMGEN-NLDSP2011005857

PATIENT
  Age: 57 Year
  Sex: Female
  Weight: 81 kg

DRUGS (5)
  1. ENBREL [Suspect]
     Indication: PSORIATIC ARTHROPATHY
     Dosage: 50 MG, WEEKLY
     Dates: start: 20100802, end: 20101123
  2. MELOXICAM [Concomitant]
     Indication: ANALGESIC THERAPY
     Dosage: 7.5 MG, 2X/DAY
     Route: 048
     Dates: start: 20070420
  3. HYDROCHLOROTHIAZIDE [Concomitant]
     Indication: HYPERTENSION
     Dosage: 25 MG, 1X/DAY
     Route: 048
     Dates: start: 20070417
  4. OMEPRAZOLE [Concomitant]
     Indication: ANALGESIC THERAPY
     Dosage: 20 MG, 2X/DAY
     Route: 048
     Dates: start: 20070417
  5. LISINOPRIL [Concomitant]
     Indication: HYPERTENSION
     Dosage: 5 MG, 1X/DAY
     Route: 048
     Dates: start: 20070417, end: 20110608

REACTIONS (5)
  - INFLUENZA [None]
  - SINUSITIS [None]
  - PNEUMONIA [None]
  - PSORIASIS [None]
  - SYSTEMIC LUPUS ERYTHEMATOSUS [None]
